FAERS Safety Report 5599315-3 (Version None)
Quarter: 2008Q1

REPORT INFORMATION
  Report Type: 
  Country: None (occurrence: None)
  Receive Date: 20080117
  Receipt Date: 20080109
  Transmission Date: 20080703
  Serious: Yes (Hospitalization)
  Sender: FDA-Public Use
  Company Number: 2007AL004637

PATIENT
  Age: 19 Year
  Sex: Female

DRUGS (3)
  1. DIAZEPAM [Suspect]
     Indication: BIPOLAR I DISORDER
     Dosage: PO
     Route: 048
     Dates: end: 20070909
  2. CIPRAMIL [Concomitant]
  3. ZOPICLONE [Concomitant]

REACTIONS (1)
  - AMNESIA [None]
